FAERS Safety Report 8973790 (Version 1)
Quarter: 2012Q4

REPORT INFORMATION
  Report Type: 
  Country: US (occurrence: US)
  Receive Date: 20121218
  Receipt Date: 20121218
  Transmission Date: 20130627
  Serious: Yes (Other)
  Sender: FDA-Public Use
  Company Number: US-BRISTOL-MYERS SQUIBB COMPANY-16413486

PATIENT
  Age: 50 Year
  Sex: Male

DRUGS (3)
  1. ABILIFY [Suspect]
     Dosage: reduced to 7.5mg once daily.
  2. TOPAMAX [Suspect]
  3. PRISTIQ [Suspect]

REACTIONS (2)
  - Pancreatitis [Unknown]
  - Weight decreased [Unknown]
